FAERS Safety Report 4556560-3 (Version None)
Quarter: 2005Q1

REPORT INFORMATION
  Report Type: 
  Country: None (occurrence: None)
  Receive Date: 20050114
  Receipt Date: 20040917
  Transmission Date: 20050727
  Serious: Yes (Life-Threatening, Hospitalization)
  Sender: FDA-Public Use
  Company Number: 0002807

PATIENT
  Age: 6 Month
  Sex: Male
  Weight: 4.96 kg

DRUGS (8)
  1. INTRALIPID 20% [Suspect]
     Indication: GASTROSCHISIS
     Dosage: 24 ML/ - DAILY/ INTRAVENOUS INF
     Route: 042
     Dates: start: 20040825, end: 20040915
  2. DEXTROSE 5% [Concomitant]
  3. TROPHAMINE [Concomitant]
  4. CYSTEINE [Concomitant]
  5. ZANTAC [Concomitant]
  6. LEVOCARNITINE [Concomitant]
  7. HEPARIN [Concomitant]
  8. MULTVITAMINS [Concomitant]

REACTIONS (4)
  - CATHETER SEPSIS [None]
  - CHOLESTASIS [None]
  - CONDITION AGGRAVATED [None]
  - PYREXIA [None]
